FAERS Safety Report 15302804 (Version 1)
Quarter: 2018Q3

REPORT INFORMATION
  Report Type: Spontaneous
  Country: US (occurrence: US)
  Receive Date: 20180821
  Receipt Date: 20180821
  Transmission Date: 20181010
  Serious: Yes (Other)
  Sender: FDA-Public Use
  Company Number: US-ELI_LILLY_AND_COMPANY-US201808007527

PATIENT
  Sex: Female

DRUGS (6)
  1. BACLOFEN. [Concomitant]
     Active Substance: BACLOFEN
     Indication: PRODUCT USED FOR UNKNOWN INDICATION
     Dosage: 20 MG, UNKNOWN
     Route: 065
  2. CYMBALTA [Suspect]
     Active Substance: DULOXETINE HYDROCHLORIDE
     Indication: PAIN
     Dosage: UNK, UNKNOWN
     Route: 065
     Dates: start: 2018
  3. IBUPROFEN. [Concomitant]
     Active Substance: IBUPROFEN
     Indication: PRODUCT USED FOR UNKNOWN INDICATION
     Dosage: 800 MG, UNKNOWN
     Route: 065
  4. POTASSIUM [Concomitant]
     Active Substance: POTASSIUM
     Indication: BLOOD POTASSIUM DECREASED
  5. ATORVASTATIN [Concomitant]
     Active Substance: ATORVASTATIN
     Indication: BLOOD CHOLESTEROL INCREASED
  6. CYMBALTA [Suspect]
     Active Substance: DULOXETINE HYDROCHLORIDE
     Indication: ANXIETY
     Dosage: UNK, UNKNOWN
     Route: 065
     Dates: start: 2014, end: 201604

REACTIONS (47)
  - Pain [Unknown]
  - Renal disorder [Unknown]
  - Anger [Unknown]
  - Anxiety [Unknown]
  - Ear infection [Unknown]
  - Rectal haemorrhage [Unknown]
  - Sciatic nerve injury [Unknown]
  - Nasal injury [Unknown]
  - Dry mouth [Unknown]
  - Insomnia [Unknown]
  - Blood cholesterol increased [Unknown]
  - Arthralgia [Unknown]
  - Rectal prolapse [Unknown]
  - Syncope [Unknown]
  - Tachyphrenia [Unknown]
  - Amnesia [Unknown]
  - Dyspnoea [Unknown]
  - Pruritus [Unknown]
  - Breast neoplasm [Unknown]
  - Mass [Unknown]
  - Chromaturia [Unknown]
  - Road traffic accident [Unknown]
  - Paraesthesia [Unknown]
  - Mood altered [Unknown]
  - Chest pain [Unknown]
  - Blood potassium decreased [Unknown]
  - Somnolence [Unknown]
  - Dizziness [Unknown]
  - Confusional state [Unknown]
  - Fibrosis [Unknown]
  - Migraine [Unknown]
  - Logorrhoea [Unknown]
  - Skin reaction [Unknown]
  - Hepatomegaly [Unknown]
  - Gastrooesophageal reflux disease [Unknown]
  - Breast discharge [Unknown]
  - Gastric dilatation [Unknown]
  - Head injury [Unknown]
  - Intervertebral disc protrusion [Unknown]
  - Hypertension [Unknown]
  - Nausea [Unknown]
  - Vision blurred [Not Recovered/Not Resolved]
  - Urticaria [Unknown]
  - Asthenia [Unknown]
  - Renal mass [Unknown]
  - Depressed mood [Unknown]
  - Musculoskeletal pain [Unknown]
